FAERS Safety Report 5813021-9 (Version None)
Quarter: 2008Q3

REPORT INFORMATION
  Report Type: 
  Country: None (occurrence: None)
  Receive Date: 20080717
  Receipt Date: 20071025
  Transmission Date: 20090109
  Serious: No
  Sender: FDA-Public Use
  Company Number: A0689732A

PATIENT
  Age: 49 Year
  Sex: Female

DRUGS (3)
  1. NICORETTE (MINT) [Suspect]
  2. COMMIT [Suspect]
  3. NICODERM CQ [Suspect]

REACTIONS (10)
  - ABNORMAL DREAMS [None]
  - DRUG INEFFECTIVE [None]
  - GINGIVAL ERYTHEMA [None]
  - ILL-DEFINED DISORDER [None]
  - INTENTIONAL DRUG MISUSE [None]
  - NIGHTMARE [None]
  - ORAL MUCOSAL ERUPTION [None]
  - POOR QUALITY SLEEP [None]
  - STOMATITIS [None]
  - WEIGHT INCREASED [None]
